FAERS Safety Report 4654725-3 (Version None)
Quarter: 2005Q2

REPORT INFORMATION
  Report Type: 
  Country: None (occurrence: None)
  Receive Date: 20050506
  Receipt Date: 20050502
  Transmission Date: 20051028
  Serious: Yes (Hospitalization, Other)
  Sender: FDA-Public Use
  Company Number: 200513853US

PATIENT
  Age: 48 Year
  Sex: Male

DRUGS (17)
  1. LANTUS [Suspect]
     Indication: DIABETES MELLITUS
     Dosage: DOSE UNIT: UNITS
  2. NOVOLOG [Concomitant]
     Dosage: DOSE: 20,30,30; FREQUENCY: BEFORE MEALS; DOSE UNIT: UNITS
  3. AVANDIA [Concomitant]
  4. GLUCOPHAGE [Concomitant]
  5. PRECOSE [Concomitant]
  6. TOPROL-XL [Concomitant]
  7. HYDROCHLOROTHIAZIDE [Concomitant]
  8. LISINOPRIL [Concomitant]
  9. LIPITOR [Concomitant]
  10. NIACIN [Concomitant]
  11. ASPIRIN [Concomitant]
  12. PLAVIX [Concomitant]
  13. NEXIUM [Concomitant]
  14. ISOSORBIDE [Concomitant]
  15. NEURONTIN [Concomitant]
  16. HUMALOG [Concomitant]
     Dosage: DOSE: UNK
  17. REGULAR INSULIN [Concomitant]
     Dosage: DOSE: UNK

REACTIONS (3)
  - BLOOD GLUCOSE INCREASED [None]
  - HOSPITALISATION [None]
  - SOMNOLENCE [None]
